FAERS Safety Report 6113708-7 (Version None)
Quarter: 2009Q1

REPORT INFORMATION
  Report Type: 
  Country: None (occurrence: None)
  Receive Date: 20090312
  Receipt Date: 20090305
  Transmission Date: 20090719
  Serious: Yes (Other)
  Sender: FDA-Public Use
  Company Number: US-ELI_LILLY_AND_COMPANY-US200903001528

PATIENT
  Sex: Female

DRUGS (3)
  1. FORTEO [Suspect]
     Indication: STRESS FRACTURE
     Dosage: UNK, UNK
     Dates: start: 20081201
  2. SIMVASTATIN [Concomitant]
     Dosage: 20 MG, UNK
  3. AMBIEN [Concomitant]

REACTIONS (6)
  - BLOOD ALDOSTERONE INCREASED [None]
  - BURNING SENSATION [None]
  - HYPOAESTHESIA [None]
  - MALAISE [None]
  - PAIN [None]
  - RENAL FAILURE CHRONIC [None]
